FAERS Safety Report 5493762-6 (Version None)
Quarter: 2007Q4

REPORT INFORMATION
  Report Type: 
  Country: None (occurrence: None)
  Receive Date: 20071023
  Receipt Date: 20071017
  Transmission Date: 20080405
  Serious: Yes (Death, Hospitalization, Other)
  Sender: FDA-Public Use
  Company Number: GB-BOEHRINGER INGELHEIM PHARMACEUTICALS, INC.-2007-DE-06133GD

PATIENT

DRUGS (1)
  1. TIOTROPIUM-BROMIDE [Suspect]
     Indication: CHRONIC OBSTRUCTIVE PULMONARY DISEASE
     Route: 055

REACTIONS (19)
  - ADMINISTRATION SITE REACTION [None]
  - BONE DISORDER [None]
  - BRONCHIAL DISORDER [None]
  - CARDIAC DISORDER [None]
  - CHRONIC OBSTRUCTIVE PULMONARY DISEASE [None]
  - CONTUSION [None]
  - EYE DISORDER [None]
  - GASTROINTESTINAL DISORDER [None]
  - GENERAL SYMPTOM [None]
  - HEADACHE [None]
  - INFECTION [None]
  - MEDIASTINAL DISORDER [None]
  - NASOPHARYNGITIS [None]
  - NEOPLASM [None]
  - NERVOUS SYSTEM DISORDER [None]
  - OROPHARYNGEAL CANDIDIASIS [None]
  - PHARYNGOLARYNGEAL PAIN [None]
  - PNEUMONIA [None]
  - RESPIRATORY DISORDER [None]
